FAERS Safety Report 8947127 (Version 2)
Quarter: 2013Q4

REPORT INFORMATION
  Report Type: Spontaneous
  Country: NZ (occurrence: NZ)
  Receive Date: 20121205
  Receipt Date: 20131022
  Transmission Date: 20140711
  Serious: Yes (Other)
  Sender: FDA-Public Use
  Company Number: NZ-ROCHE-1163825

PATIENT
  Age: 75 Year
  Sex: Male

DRUGS (4)
  1. TOCILIZUMAB [Suspect]
     Indication: POLYCHONDRITIS
     Route: 042
     Dates: start: 201110, end: 201205
  2. PREDNISONE [Concomitant]
     Indication: POLYCHONDRITIS
     Route: 065
  3. PREDNISONE [Concomitant]
     Route: 065
  4. METHOTREXATE [Concomitant]
     Indication: POLYCHONDRITIS
     Route: 048

REACTIONS (1)
  - Colitis [Recovered/Resolved]
